FAERS Safety Report 8773829 (Version 2)
Quarter: 2012Q4

REPORT INFORMATION
  Report Type: 
  Country: US (occurrence: US)
  Receive Date: 20120907
  Receipt Date: 20120912
  Transmission Date: 20130627
  Serious: Yes (Hospitalization)
  Sender: FDA-Public Use
  Company Number: US-ACTELION-A-NJ2012-71102

PATIENT
  Age: 50 Year
  Sex: Male

DRUGS (5)
  1. VENTAVIS [Suspect]
     Indication: PULMONARY ARTERIAL HYPERTENSION
     Dosage: UNK
     Route: 055
  2. ADCIRCA [Concomitant]
  3. LETAIRIS [Concomitant]
  4. LASIX [Concomitant]
  5. SPIRONOLACTONE [Concomitant]

REACTIONS (6)
  - Right ventricular failure [Unknown]
  - Abdominal distension [Unknown]
  - Fluid overload [Unknown]
  - Drug dose omission [Unknown]
  - Headache [Unknown]
  - Dyspnoea exertional [Unknown]
